FAERS Safety Report 16648885 (Version 1)
Quarter: 2019Q3

REPORT INFORMATION
  Report Type: Report from Study
  Country: CA (occurrence: CA)
  Receive Date: 20190730
  Receipt Date: 20190730
  Transmission Date: 20191004
  Serious: Yes (Hospitalization, Other)
  Sender: FDA-Public Use
  Company Number: CA-TEVA-2019-CA-1082946

PATIENT
  Age: 56 Year
  Sex: Male

DRUGS (9)
  1. PREDNISONE. [Concomitant]
     Active Substance: PREDNISONE
  2. ACETYLSALICYLIC ACID [Concomitant]
     Active Substance: ASPIRIN
  3. ATORVASTATIN [Concomitant]
     Active Substance: ATORVASTATIN
  4. RABEPRAZOLE [Concomitant]
     Active Substance: RABEPRAZOLE
  5. REMICADE [Suspect]
     Active Substance: INFLIXIMAB
     Indication: CROHN^S DISEASE
     Route: 042
  6. IRON SULPHATE [Concomitant]
     Active Substance: FERROUS SULFATE ANHYDROUS
  7. MESALAMINE. [Concomitant]
     Active Substance: MESALAMINE
  8. CIPROFLOXACIN. [Suspect]
     Active Substance: CIPROFLOXACIN
     Indication: INFECTION
     Route: 065
  9. VALSARTAN. [Concomitant]
     Active Substance: VALSARTAN

REACTIONS (6)
  - Hypersensitivity [Unknown]
  - Off label use [Unknown]
  - Product use issue [Unknown]
  - Drug hypersensitivity [Unknown]
  - Gastric infection [Unknown]
  - Hepatic cirrhosis [Unknown]
